FAERS Safety Report 4393100-6 (Version None)
Quarter: 2004Q3

REPORT INFORMATION
  Report Type: 
  Country: None (occurrence: None)
  Receive Date: 20040702
  Receipt Date: 20040623
  Transmission Date: 20050211
  Serious: Yes (Death, Hospitalization)
  Sender: FDA-Public Use
  Company Number: 2004SE03436

PATIENT
  Age: 90 Year
  Sex: Male

DRUGS (7)
  1. ROSUVASTATIN [Suspect]
     Indication: CARDIAC FAILURE
     Dosage: 10 MG DAILY PO
     Route: 048
     Dates: start: 20040414, end: 20040417
  2. PLACEBO [Suspect]
     Indication: CARDIAC FAILURE
     Dates: start: 20040323, end: 20040414
  3. LASIX [Concomitant]
  4. ASCAL [Concomitant]
  5. ENALAPRIL MALEATE [Concomitant]
  6. SELOKEEN [Concomitant]
  7. SINTROM [Concomitant]

REACTIONS (7)
  - ASCITES [None]
  - CIRCULATORY COLLAPSE [None]
  - EPISTAXIS [None]
  - GALLBLADDER ENLARGEMENT [None]
  - HEPATITIS TOXIC [None]
  - RASH [None]
  - REFUSAL OF TREATMENT BY PATIENT [None]
